FAERS Safety Report 8116398-7 (Version None)
Quarter: 2011Q4

REPORT INFORMATION
  Report Type: 
  Country: None (occurrence: None)
  Receive Date: 20111227
  Receipt Date: 20110902
  Transmission Date: 20120403
  Serious: No
  Sender: FDA-Public Use
  Company Number: PHEH2011US03444

PATIENT
  Sex: Female
  Weight: 70.3 kg

DRUGS (1)
  1. GILENYA [Suspect]
     Indication: MULTIPLE SCLEROSIS
     Dosage: 0.5 MG, EVERYDAY, ORAL
     Route: 048
     Dates: start: 20110825

REACTIONS (5)
  - HEART RATE DECREASED [None]
  - HEADACHE [None]
  - SNEEZING [None]
  - INFLUENZA LIKE ILLNESS [None]
  - RHINORRHOEA [None]
